FAERS Safety Report 23921491 (Version 4)
Quarter: 2024Q3

REPORT INFORMATION
  Report Type: Spontaneous
  Country: PL (occurrence: PL)
  Receive Date: 20240530
  Receipt Date: 20240917
  Transmission Date: 20241016
  Serious: Yes (Death, Hospitalization, Other)
  Sender: GLAXOSMITHKLINE
  Company Number: None

PATIENT

DRUGS (27)
  1. FLUTICASONE PROPIONATE [Suspect]
     Active Substance: FLUTICASONE PROPIONATE
     Indication: Chronic graft versus host disease
     Dosage: UNK
     Route: 065
  2. FLUTICASONE PROPIONATE [Suspect]
     Active Substance: FLUTICASONE PROPIONATE
     Indication: Graft versus host disease
  3. METHYLPREDNISOLONE [Suspect]
     Active Substance: METHYLPREDNISOLONE
     Indication: Chronic graft versus host disease
     Dosage: UNK
     Route: 048
  4. METHYLPREDNISOLONE [Suspect]
     Active Substance: METHYLPREDNISOLONE
     Indication: Graft versus host disease
  5. MELPHALAN [Suspect]
     Active Substance: MELPHALAN
     Indication: Chronic graft versus host disease
     Dosage: UNK (CONDITIONING)
     Route: 065
  6. DEXAMETHASONE [Suspect]
     Active Substance: DEXAMETHASONE
     Indication: Chronic graft versus host disease
     Dosage: UNK
     Route: 065
  7. METHOTREXATE [Suspect]
     Active Substance: METHOTREXATE
     Indication: Chronic graft versus host disease
     Dosage: UNK
     Route: 065
  8. METHOTREXATE [Suspect]
     Active Substance: METHOTREXATE
     Indication: Prophylaxis against graft versus host disease
  9. METHOTREXATE [Suspect]
     Active Substance: METHOTREXATE
     Indication: Graft versus host disease
  10. MOMETASONE FUROATE [Suspect]
     Active Substance: MOMETASONE FUROATE
     Indication: Chronic graft versus host disease
     Dosage: UNK
     Route: 065
  11. FLUDARABINE [Suspect]
     Active Substance: FLUDARABINE PHOSPHATE
     Indication: Chronic graft versus host disease
     Dosage: UNK (CONDITIONING)
     Route: 065
  12. MYCOPHENOLATE MOFETIL [Suspect]
     Active Substance: MYCOPHENOLATE MOFETIL
     Indication: Chronic graft versus host disease
     Dosage: UNK
     Route: 065
  13. MYCOPHENOLATE MOFETIL [Suspect]
     Active Substance: MYCOPHENOLATE MOFETIL
     Indication: Graft versus host disease
  14. RUXOLITINIB [Suspect]
     Active Substance: RUXOLITINIB
     Indication: Chronic graft versus host disease
     Dosage: UNK
     Route: 048
  15. SIROLIMUS [Suspect]
     Active Substance: SIROLIMUS
     Indication: Chronic graft versus host disease
     Dosage: UNK
     Route: 065
  16. CYCLOSPORINE [Suspect]
     Active Substance: CYCLOSPORINE
     Indication: Chronic graft versus host disease
     Dosage: UNK
     Route: 065
  17. CYCLOSPORINE [Suspect]
     Active Substance: CYCLOSPORINE
     Indication: Prophylaxis against graft versus host disease
  18. TACROLIMUS [Suspect]
     Active Substance: TACROLIMUS
     Indication: Chronic graft versus host disease
     Dosage: UNK
     Route: 065
  19. AZITHROMYCIN [Suspect]
     Active Substance: AZITHROMYCIN
     Indication: Graft versus host disease
     Dosage: 500 MG
     Route: 065
  20. MONTELUKAST [Suspect]
     Active Substance: MONTELUKAST SODIUM
     Indication: Graft versus host disease
     Dosage: UNK
     Route: 065
  21. MONTELUKAST [Suspect]
     Active Substance: MONTELUKAST SODIUM
     Indication: Lung disorder
  22. METOPROLOL [Suspect]
     Active Substance: METOPROLOL
     Indication: Product used for unknown indication
     Dosage: UNK; UNK (23.75 MG 2X1TAB)
     Route: 065
  23. CANDESARTAN [Suspect]
     Active Substance: CANDESARTAN
     Indication: Product used for unknown indication
     Dosage: 800 MG (1/2 TAB)
     Route: 065
  24. CANDESARTAN [Suspect]
     Active Substance: CANDESARTAN
     Dosage: 8 MG (1/2 TAB)
     Route: 065
  25. SACUBITRIL\VALSARTAN [Suspect]
     Active Substance: SACUBITRIL\VALSARTAN
     Indication: Product used for unknown indication
     Dosage: UNK; UNK (24/26MG 2X1TAB)
     Route: 065
  26. TORSEMIDE [Suspect]
     Active Substance: TORSEMIDE
     Indication: Product used for unknown indication
     Dosage: 100 MG (2X1 TAB)
     Route: 065
  27. TORSEMIDE [Suspect]
     Active Substance: TORSEMIDE
     Dosage: 10 MG (2X1 TAB) (1 TAB IN MORNING)
     Route: 065

REACTIONS (21)
  - Pneumonia [Fatal]
  - Chronic graft versus host disease [Fatal]
  - Weight decreased [Fatal]
  - Lichenoid keratosis [Fatal]
  - Erythema [Fatal]
  - Mastication disorder [Fatal]
  - General physical health deterioration [Fatal]
  - Dyspnoea [Fatal]
  - Pleural effusion [Fatal]
  - Disease progression [Fatal]
  - Disease recurrence [Fatal]
  - Drug resistance [Fatal]
  - Condition aggravated [Fatal]
  - Ejection fraction abnormal [Unknown]
  - Cough [Unknown]
  - Heart rate increased [Unknown]
  - Exercise tolerance decreased [Unknown]
  - Pulmonary congestion [Unknown]
  - Off label use [Unknown]
  - Product use in unapproved indication [Unknown]
  - Drug ineffective for unapproved indication [Unknown]
